FAERS Safety Report 9435678 (Version 1)
Quarter: 2013Q3

REPORT INFORMATION
  Report Type: Spontaneous
  Country: US (occurrence: US)
  Receive Date: 20130730
  Receipt Date: 20130730
  Transmission Date: 20140515
  Serious: Yes (Other)
  Sender: FDA-Public Use
  Company Number: 2013SA074181

PATIENT
  Age: 49 Year
  Sex: Female

DRUGS (1)
  1. CAPZASIN [Suspect]
     Indication: MYALGIA
     Route: 061
     Dates: start: 20130722, end: 20130722

REACTIONS (2)
  - Burning sensation [None]
  - Urticaria [None]
